FAERS Safety Report 6917269-1 (Version None)
Quarter: 2010Q3

REPORT INFORMATION
  Report Type: 
  Country: None (occurrence: None)
  Receive Date: 20100810
  Receipt Date: 20100806
  Transmission Date: 20110219
  Serious: Yes (Life-Threatening)
  Sender: FDA-Public Use
  Company Number: US-MERCK-1007USA02875

PATIENT
  Age: 41 Year
  Sex: Male

DRUGS (3)
  1. ISENTRESS [Suspect]
     Indication: HIV INFECTION
     Route: 048
     Dates: start: 20100307, end: 20100603
  2. DOXYCYCLINE [Concomitant]
     Route: 065
     Dates: start: 20100603
  3. TRUVADA [Concomitant]
     Route: 065
     Dates: start: 20100307

REACTIONS (10)
  - ABDOMINAL PAIN [None]
  - ALDOLASE INCREASED [None]
  - ASPARTATE AMINOTRANSFERASE INCREASED [None]
  - ASTHENIA [None]
  - BLOOD CREATINE PHOSPHOKINASE INCREASED [None]
  - CHILLS [None]
  - DIARRHOEA [None]
  - GROIN PAIN [None]
  - LIPASE ABNORMAL [None]
  - PYREXIA [None]
